FAERS Safety Report 23975024 (Version 1)
Quarter: 2024Q2

REPORT INFORMATION
  Report Type: Spontaneous
  Country: US (occurrence: US)
  Receive Date: 20240614
  Receipt Date: 20240614
  Transmission Date: 20240716
  Serious: No
  Sender: FDA-Public Use
  Company Number: US-Blueprint Medicines Corporation-3891

PATIENT
  Sex: Female

DRUGS (2)
  1. AYVAKIT [Suspect]
     Active Substance: AVAPRITINIB
     Indication: Brain neoplasm malignant
     Dosage: TOTAL OF 225MG DAILY
     Route: 065
     Dates: start: 20230616
  2. AYVAKIT [Suspect]
     Active Substance: AVAPRITINIB
     Dosage: TOTAL OF 225MG DAILY
     Route: 065
     Dates: start: 20230616

REACTIONS (1)
  - Off label use [Unknown]
